FAERS Safety Report 14127389 (Version 1)
Quarter: 2017Q4

REPORT INFORMATION
  Report Type: Spontaneous
  Country: US (occurrence: US)
  Receive Date: 20171026
  Receipt Date: 20171026
  Transmission Date: 20180321
  Serious: No
  Sender: FDA-Public Use
  Company Number: US-TEVA-728544ACC

PATIENT
  Age: 67 Year
  Sex: Female
  Weight: 59.02 kg

DRUGS (1)
  1. CARBIDOPA AND LEVODOPA [Suspect]
     Active Substance: CARBIDOPA\LEVODOPA
     Indication: PARKINSON^S DISEASE
     Dosage: CARBIDOPA/LEVODOPA : 25/100 MG

REACTIONS (3)
  - Intentional product misuse [Unknown]
  - Product substitution issue [None]
  - Fatigue [Unknown]

NARRATIVE: CASE EVENT DATE: 20160928
